FAERS Safety Report 13187398 (Version 6)
Quarter: 2017Q3

REPORT INFORMATION
  Report Type: Report from Study
  Country: US (occurrence: US)
  Receive Date: 20170206
  Receipt Date: 20170704
  Transmission Date: 20171127
  Serious: No
  Sender: FDA-Public Use
  Company Number: US-ALEXION PHARMACEUTICALS INC.-A201700901

PATIENT
  Sex: Female

DRUGS (5)
  1. STRENSIQ [Suspect]
     Active Substance: ASFOTASE ALFA
     Indication: HYPOPHOSPHATASIA
     Dosage: 7 AND 8 ML, UNK
     Route: 058
  2. STRENSIQ [Suspect]
     Active Substance: ASFOTASE ALFA
     Dosage: 1 MG/KG, TIW
     Route: 058
  3. STRENSIQ [Suspect]
     Active Substance: ASFOTASE ALFA
     Dosage: 1 MG/KG, TIW
     Route: 058
     Dates: end: 20170608
  4. STRENSIQ [Suspect]
     Active Substance: ASFOTASE ALFA
     Dosage: 5 AND 6 ML, UNK
     Route: 058
  5. STRENSIQ [Suspect]
     Active Substance: ASFOTASE ALFA
     Dosage: 1 MG/KG, TIW
     Route: 058
     Dates: end: 20170608

REACTIONS (6)
  - Injection site urticaria [Unknown]
  - Inappropriate schedule of drug administration [Recovered/Resolved]
  - Injection site atrophy [Unknown]
  - Injection site bruising [Unknown]
  - Skin irritation [Unknown]
  - Injection site pain [Unknown]

NARRATIVE: CASE EVENT DATE: 20170126
